FAERS Safety Report 18640955 (Version 1)
Quarter: 2020Q4

REPORT INFORMATION
  Report Type: Spontaneous
  Country: US (occurrence: US)
  Receive Date: 20201221
  Receipt Date: 20201221
  Transmission Date: 20210114
  Serious: No
  Sender: FDA-Public Use
  Company Number: US-CELLTRION INC.-2020US027987

PATIENT

DRUGS (3)
  1. TRUXIMA [Suspect]
     Active Substance: RITUXIMAB-ABBS
     Indication: SJOGREN^S SYNDROME
  2. TRUXIMA [Suspect]
     Active Substance: RITUXIMAB-ABBS
     Indication: AUTOIMMUNE DISORDER
  3. TRUXIMA [Suspect]
     Active Substance: RITUXIMAB-ABBS
     Indication: NEUROPATHY PERIPHERAL
     Dosage: 1000 MG ONCE A WEEK X 2 DOSES

REACTIONS (2)
  - Product prescribing issue [Unknown]
  - Off label use [Unknown]
